FAERS Safety Report 13931359 (Version 1)
Quarter: 2017Q3

REPORT INFORMATION
  Report Type: Report from Study
  Country: US (occurrence: US)
  Receive Date: 20170903
  Receipt Date: 20170903
  Transmission Date: 20171127
  Serious: Yes (Other)
  Sender: FDA-Public Use
  Company Number: US-BEH-2017083213

PATIENT
  Age: 28 Year
  Sex: Female

DRUGS (16)
  1. ALBUMINAR-5 [Suspect]
     Active Substance: ALBUMIN HUMAN
     Indication: CYTOMEGALOVIRUS INFECTION
     Dosage: 187.28 UNK, QMT
     Route: 042
     Dates: start: 20170307
  2. PROAIR HFA [Concomitant]
     Active Substance: ALBUTEROL SULFATE
  3. BLINDED ALBUMIN 5% [Suspect]
     Active Substance: ALBUMIN HUMAN
     Dosage: ONE INFUSION
     Route: 042
  4. BLINDED ALBUMIN 5% [Suspect]
     Active Substance: ALBUMIN HUMAN
     Dosage: ONE INFUSION
     Route: 042
  5. ALBUMINAR-5 [Suspect]
     Active Substance: ALBUMIN HUMAN
     Dosage: 187.28 UNK, QMT
     Route: 042
     Dates: start: 20170725, end: 20170725
  6. ALBUMINAR-5 [Suspect]
     Active Substance: ALBUMIN HUMAN
     Dosage: ONE INFUSION
     Route: 042
  7. CYTOGAM [Suspect]
     Active Substance: HUMAN CYTOMEGALOVIRUS IMMUNE GLOBULIN
     Indication: CYTOMEGALOVIRUS INFECTION
     Dosage: 187.28 UNK, QMT
     Route: 042
     Dates: start: 20170307
  8. CYTOGAM [Suspect]
     Active Substance: HUMAN CYTOMEGALOVIRUS IMMUNE GLOBULIN
     Dosage: ONE INFUSION
     Route: 042
  9. ALBUMINAR-5 [Suspect]
     Active Substance: ALBUMIN HUMAN
     Dosage: ONE INFUSION
     Route: 042
  10. BLINDED ALBUMIN 5% [Suspect]
     Active Substance: ALBUMIN HUMAN
     Dosage: 187.28 UNK, QMT
     Route: 042
     Dates: start: 20170725, end: 20170725
  11. ALBUMINAR-5 [Suspect]
     Active Substance: ALBUMIN HUMAN
     Dosage: ONE INFUSION
     Route: 042
  12. BLINDED ALBUMIN 5% [Suspect]
     Active Substance: ALBUMIN HUMAN
     Dosage: ONE INFUSION
     Route: 042
  13. CYTOGAM [Suspect]
     Active Substance: HUMAN CYTOMEGALOVIRUS IMMUNE GLOBULIN
     Dosage: ONE INFUSION
     Route: 042
  14. BLINDED ALBUMIN 5% [Suspect]
     Active Substance: ALBUMIN HUMAN
     Indication: CYTOMEGALOVIRUS INFECTION
     Dosage: 187.28 UNK, QMT
     Route: 042
     Dates: start: 20170307
  15. CYTOGAM [Suspect]
     Active Substance: HUMAN CYTOMEGALOVIRUS IMMUNE GLOBULIN
     Dosage: ONE INFUSION
     Route: 042
  16. CYTOGAM [Suspect]
     Active Substance: HUMAN CYTOMEGALOVIRUS IMMUNE GLOBULIN
     Dosage: 187.28 UNK, QMT
     Route: 042
     Dates: start: 20170725, end: 20170725

REACTIONS (2)
  - Pre-eclampsia [Unknown]
  - Premature delivery [Unknown]

NARRATIVE: CASE EVENT DATE: 201708
